FAERS Safety Report 6001335-1 (Version None)
Quarter: 2008Q4

REPORT INFORMATION
  Report Type: 
  Country: None (occurrence: None)
  Receive Date: 20081215
  Receipt Date: 20081211
  Transmission Date: 20090506
  Serious: Yes (Life-Threatening, Disabling)
  Sender: FDA-Public Use
  Company Number: PHHY2008IE29701

PATIENT
  Sex: Male

DRUGS (2)
  1. CLOZARIL [Suspect]
     Indication: SCHIZOPHRENIA
     Dosage: 450 MG DAILY
     Route: 048
     Dates: start: 20081103
  2. ESCITALOPRAM [Concomitant]
     Indication: DEPRESSION
     Dosage: 10 MG DAILY
     Route: 048
     Dates: start: 20081001

REACTIONS (2)
  - CRANIOTOMY [None]
  - EXTRADURAL HAEMATOMA [None]
